FAERS Safety Report 9558026 (Version 1)
Quarter: 2013Q3

REPORT INFORMATION
  Report Type: Spontaneous
  Country: US (occurrence: US)
  Receive Date: 20130926
  Receipt Date: 20130926
  Transmission Date: 20140515
  Serious: No
  Sender: FDA-Public Use
  Company Number: US-BIOGENIDEC-2013BI038400

PATIENT
  Age: 47 Year
  Sex: Female

DRUGS (2)
  1. TECFIDERA [Suspect]
     Indication: MULTIPLE SCLEROSIS
  2. ASPIRIN [Concomitant]

REACTIONS (4)
  - Hypersensitivity [Not Recovered/Not Resolved]
  - Flushing [Not Recovered/Not Resolved]
  - Rash erythematous [Unknown]
  - Pruritus [Unknown]
